FAERS Safety Report 12563334 (Version 1)
Quarter: 2016Q3

REPORT INFORMATION
  Report Type: Spontaneous
  Country: DE (occurrence: DE)
  Receive Date: 20160715
  Receipt Date: 20160715
  Transmission Date: 20161109
  Serious: Yes (Congenital Anomaly)
  Sender: FDA-Public Use
  Company Number: GXKR2016DE003355

PATIENT

DRUGS (6)
  1. FOLSAEURE [Concomitant]
     Active Substance: FOLIC ACID
     Indication: VITAMIN SUPPLEMENTATION
     Dosage: 0.4 [MG/D ]; GW 15 TO 34
     Route: 064
  2. BISOPROLOL [Concomitant]
     Active Substance: BISOPROLOL
     Indication: HYPERTENSION
     Dosage: 5 [MG/D ]; GW 20.3 TO 39.3
     Route: 064
  3. VENLAFAXINE [Suspect]
     Active Substance: VENLAFAXINE HYDROCHLORIDE
     Indication: PERINATAL DEPRESSION
     Dosage: 225 [MG/D (BIS 150 MG/D) ]/ DOSE REDUCTION TO 150 MG/D IN WEEK 12.
     Route: 064
     Dates: start: 20150525, end: 20160224
  4. AMLODIPINE [Suspect]
     Active Substance: AMLODIPINE BESYLATE
     Indication: HYPERTENSION
     Dosage: 10 [MG/D ]; GW 6 TO 39.2
     Route: 064
  5. EXFORGE [Concomitant]
     Active Substance: AMLODIPINE BESYLATE\VALSARTAN
     Indication: HYPERTENSION
     Dosage: 10 [MG/D ] / 160 [MG/D ]; GW 0 TO 6
     Route: 064
  6. METHYLDOPA. [Suspect]
     Active Substance: METHYLDOPA
     Indication: HYPERTENSION
     Dosage: 750 [MG/D ]/ 250-0-500 MG/D; GW 6 TO 20.3
     Route: 064

REACTIONS (2)
  - Aortic valve stenosis [Not Recovered/Not Resolved]
  - Atrial septal defect [Recovering/Resolving]
